FAERS Safety Report 11823985 (Version 1)
Quarter: 2015Q4

REPORT INFORMATION
  Report Type: Report from Study
  Country: US (occurrence: US)
  Receive Date: 20151210
  Receipt Date: 20151210
  Transmission Date: 20160305
  Serious: Yes (Other)
  Sender: FDA-Public Use
  Company Number: US-BAYER-2015-401823

PATIENT
  Age: 56 Year
  Sex: Male

DRUGS (3)
  1. STIVARGA [Suspect]
     Active Substance: REGORAFENIB
     Indication: COLORECTAL CANCER METASTATIC
     Dosage: 120MG DAILY
     Route: 048
     Dates: start: 20150902
  2. STIVARGA [Suspect]
     Active Substance: REGORAFENIB
     Indication: COLORECTAL CANCER METASTATIC
     Dosage: 120 MG, QD
     Route: 048
     Dates: start: 20150914
  3. STIVARGA [Suspect]
     Active Substance: REGORAFENIB
     Indication: COLORECTAL CANCER METASTATIC
     Dosage: 160 MG, QD
     Route: 048
     Dates: start: 20150810, end: 20150820

REACTIONS (18)
  - Fatigue [Recovering/Resolving]
  - Back pain [Recovered/Resolved]
  - Hypoaesthesia [None]
  - Dizziness [None]
  - Pruritus [None]
  - Visual impairment [None]
  - Hypoaesthesia [None]
  - Insomnia [Not Recovered/Not Resolved]
  - Neuropathy peripheral [None]
  - Dyspnoea [None]
  - Pain [None]
  - Peripheral swelling [None]
  - Weight increased [Not Recovered/Not Resolved]
  - Dysphonia [None]
  - Headache [None]
  - Muscle spasms [Not Recovered/Not Resolved]
  - Balance disorder [None]
  - Oedema peripheral [Recovering/Resolving]

NARRATIVE: CASE EVENT DATE: 201508
